FAERS Safety Report 7649019-8 (Version None)
Quarter: 2011Q3

REPORT INFORMATION
  Report Type: 
  Country: None (occurrence: None)
  Receive Date: 20110802
  Receipt Date: 20110720
  Transmission Date: 20111222
  Serious: Yes (Hospitalization, Other)
  Sender: FDA-Public Use
  Company Number: US-ASTRAZENECA-2008UW19817

PATIENT
  Age: 550 Month
  Sex: Male
  Weight: 133.8 kg

DRUGS (8)
  1. ELAVIL [Concomitant]
     Dates: start: 20030101, end: 20060101
  2. REMERON [Concomitant]
     Indication: DEPRESSION
     Dates: start: 20061128
  3. SEROQUEL [Suspect]
     Indication: SLEEP DISORDER
     Route: 048
     Dates: start: 20060207, end: 20061128
  4. ASPIRIN [Concomitant]
     Route: 048
     Dates: start: 20060207
  5. CELEBREX [Concomitant]
     Route: 048
     Dates: start: 20060214
  6. METHOCARBAMOL [Concomitant]
     Route: 048
     Dates: start: 20060627
  7. LIPITOR [Concomitant]
     Route: 048
     Dates: start: 20060207
  8. NEXIUM [Concomitant]
     Route: 048
     Dates: start: 20061128

REACTIONS (6)
  - ARTHRALGIA [None]
  - OVERDOSE [None]
  - HYPERGLYCAEMIA [None]
  - DIABETES MELLITUS [None]
  - TOXICITY TO VARIOUS AGENTS [None]
  - LOSS OF CONSCIOUSNESS [None]
